FAERS Safety Report 13153283 (Version 4)
Quarter: 2017Q2

REPORT INFORMATION
  Report Type: Report from Study
  Country: JP (occurrence: JP)
  Receive Date: 20170126
  Receipt Date: 20170522
  Transmission Date: 20170830
  Serious: Yes (Hospitalization, Congenital Anomaly)
  Sender: FDA-Public Use
  Company Number: JP-ASTELLAS-2017JP000853

PATIENT
  Sex: Male
  Weight: 2 kg

DRUGS (1)
  1. TACROLIMUS. [Suspect]
     Active Substance: TACROLIMUS
     Indication: FOETAL EXPOSURE DURING PREGNANCY
     Route: 064
     Dates: start: 2015

REACTIONS (1)
  - Low birth weight baby [Recovered/Resolved]
